FAERS Safety Report 6888460-8 (Version None)
Quarter: 2010Q3

REPORT INFORMATION
  Report Type: 
  Country: None (occurrence: None)
  Receive Date: 20100730
  Receipt Date: 20100722
  Transmission Date: 20110219
  Serious: Yes (Other)
  Sender: FDA-Public Use
  Company Number: US-B.I. PHARMACEUTICALS,INC./RIDGEFIELD-2010-BP-08346BP

PATIENT
  Sex: Female

DRUGS (1)
  1. FLOMAX [Suspect]

REACTIONS (1)
  - ABORTION SPONTANEOUS [None]
